FAERS Safety Report 5904616-2 (Version None)
Quarter: 2008Q4

REPORT INFORMATION
  Report Type: 
  Country: None (occurrence: None)
  Receive Date: 20081001
  Receipt Date: 20080924
  Transmission Date: 20090506
  Serious: Yes (Hospitalization)
  Sender: FDA-Public Use
  Company Number: FR-CELGENEUS-056-20785-08091517

PATIENT
  Sex: Male
  Weight: 70 kg

DRUGS (4)
  1. THALIDOMIDE [Suspect]
     Indication: MULTIPLE MYELOMA
     Route: 048
     Dates: start: 20080909, end: 20080924
  2. VELCADE [Suspect]
     Indication: MULTIPLE MYELOMA
     Route: 051
     Dates: start: 20080909, end: 20080919
  3. DEXAMETHASONE [Suspect]
     Indication: MULTIPLE MYELOMA
     Route: 048
     Dates: start: 20080909, end: 20080912
  4. MORPHINE SULFATE INJ [Concomitant]
     Indication: PAIN
     Route: 048
     Dates: start: 20080806

REACTIONS (2)
  - BRONCHOPNEUMOPATHY [None]
  - HYPOXIA [None]
